FAERS Safety Report 23473422 (Version 1)
Quarter: 2024Q1

REPORT INFORMATION
  Report Type: Other
  Country: FR (occurrence: FR)
  Receive Date: 20240203
  Receipt Date: 20240203
  Transmission Date: 20240410
  Serious: Yes (Hospitalization)
  Sender: FDA-Public Use
  Company Number: None

PATIENT
  Age: 42 Year
  Sex: Female

DRUGS (4)
  1. IBUPROFEN [Suspect]
     Active Substance: IBUPROFEN
     Indication: Influenza like illness
     Dosage: 1200 MILLIGRAM PER DAY (400 MG X3/J )
     Route: 048
     Dates: start: 20240102, end: 20240104
  2. ACETAMINOPHEN [Concomitant]
     Active Substance: ACETAMINOPHEN
     Indication: Influenza like illness
     Dosage: 4 GRAM/DAY (1 G X4/J )
     Route: 048
     Dates: start: 20231224
  3. CLAVULANIC ACID [Concomitant]
     Active Substance: CLAVULANIC ACID
     Indication: Bronchitis
     Dosage: 3 DOSAGE FORM/DAY
     Route: 048
     Dates: start: 20240104
  4. AMOXICILLIN [Concomitant]
     Active Substance: AMOXICILLIN
     Indication: Bronchitis
     Dosage: 3 DOSAGE FORM/DAY
     Route: 048
     Dates: start: 20240104

REACTIONS (3)
  - Pleurisy [Recovered/Resolved]
  - Pneumonia [Recovered/Resolved]
  - Off label use [Unknown]

NARRATIVE: CASE EVENT DATE: 20240101
